FAERS Safety Report 8535155-0 (Version None)
Quarter: 2012Q3

REPORT INFORMATION
  Report Type: 
  Country: None (occurrence: None)
  Receive Date: 20120724
  Receipt Date: 20120723
  Transmission Date: 20120928
  Serious: Yes (Hospitalization, Other)
  Sender: FDA-Public Use
  Company Number: CA-009507513-1207CAN006619

PATIENT

DRUGS (4)
  1. CAMPRAL [Concomitant]
  2. TOPAMAX [Concomitant]
  3. LORATADINE AND PSEUDOEPHEDRINE SULFATE [Suspect]
     Indication: HYPERSENSITIVITY
  4. VALPROIC ACID [Concomitant]

REACTIONS (4)
  - APATHY [None]
  - LETHARGY [None]
  - LOSS OF CONSCIOUSNESS [None]
  - CONVULSION [None]
